FAERS Safety Report 14284382 (Version 2)
Quarter: 2017Q4

REPORT INFORMATION
  Report Type: Spontaneous
  Country: JP (occurrence: JP)
  Receive Date: 20171214
  Receipt Date: 20171221
  Transmission Date: 20180321
  Serious: Yes (Death, Other)
  Sender: FDA-Public Use
  Company Number: JP-ROCHE-2038978

PATIENT
  Age: 38 Year
  Sex: Female

DRUGS (3)
  1. AVASTIN [Suspect]
     Active Substance: BEVACIZUMAB
     Indication: CERVIX CARCINOMA
     Route: 041
     Dates: start: 20170905, end: 20171031
  2. CARBOPLATIN. [Concomitant]
     Active Substance: CARBOPLATIN
     Indication: CERVIX CARCINOMA
     Route: 041
     Dates: start: 20170905, end: 20171031
  3. PACLITAXEL. [Concomitant]
     Active Substance: PACLITAXEL
     Indication: CERVIX CARCINOMA
     Route: 041
     Dates: start: 20170905, end: 20171031

REACTIONS (6)
  - Pulmonary embolism [Fatal]
  - Cervix carcinoma [Fatal]
  - Cough [Unknown]
  - Chest pain [Fatal]
  - Acute right ventricular failure [Unknown]
  - Dyspnoea [Fatal]

NARRATIVE: CASE EVENT DATE: 20171204
